FAERS Safety Report 4372226-7 (Version None)
Quarter: 2004Q2

REPORT INFORMATION
  Report Type: 
  Country: None (occurrence: None)
  Receive Date: 20040607
  Receipt Date: 20040531
  Transmission Date: 20050107
  Serious: Yes (Death)
  Sender: FDA-Public Use
  Company Number: IT-BRISTOL-MYERS SQUIBB COMPANY-12600086

PATIENT
  Age: 44 Year
  Sex: Male

DRUGS (3)
  1. SUSTIVA [Suspect]
     Indication: HIV INFECTION
     Route: 048
     Dates: start: 20010626, end: 20011006
  2. ZIAGEN [Suspect]
     Indication: HIV INFECTION
     Route: 048
     Dates: start: 20010626, end: 20011006
  3. ZERIT [Concomitant]

REACTIONS (3)
  - CARDIAC FAILURE ACUTE [None]
  - PULMONARY OEDEMA [None]
  - PYREXIA [None]
